FAERS Safety Report 19928960 (Version 2)
Quarter: 2021Q4

REPORT INFORMATION
  Report Type: Spontaneous
  Country: JP (occurrence: JP)
  Receive Date: 20211007
  Receipt Date: 20211028
  Transmission Date: 20220303
  Serious: Yes (Hospitalization)
  Sender: FDA-Public Use
  Company Number: JP-COVIS PHARMA EUROPE B.V.-2021COV24257

PATIENT
  Age: 75 Year
  Sex: Male

DRUGS (3)
  1. ALVESCO [Suspect]
     Active Substance: CICLESONIDE
     Indication: COVID-19 pneumonia
     Dosage: (800 UG/DAY, TWICE DAILY) WAS INHALED FOR 7 DAYS.
     Dates: start: 20210315, end: 20210322
  2. KALETRA [Suspect]
     Active Substance: LOPINAVIR\RITONAVIR
     Indication: COVID-19 pneumonia
  3. WARFARIN [Concomitant]
     Active Substance: WARFARIN
     Indication: Atrial fibrillation

REACTIONS (3)
  - Oral candidiasis [Recovered/Resolved]
  - Pneumonia aspiration [Unknown]
  - Off label use [Unknown]

NARRATIVE: CASE EVENT DATE: 20210322
